FAERS Safety Report 9106546 (Version 1)
Quarter: 2013Q1

REPORT INFORMATION
  Report Type: Spontaneous
  Country: US (occurrence: US)
  Receive Date: 20130221
  Receipt Date: 20130221
  Transmission Date: 20140127
  Serious: Yes (Other)
  Sender: FDA-Public Use
  Company Number: US-ELI_LILLY_AND_COMPANY-US201302004034

PATIENT
  Sex: Male

DRUGS (4)
  1. CYMBALTA [Suspect]
     Indication: DEPRESSION
     Dosage: 30 MG, QD
     Dates: start: 20130110, end: 20130116
  2. CYMBALTA [Suspect]
     Dosage: 20 MG, UNK
  3. CYMBALTA [Suspect]
     Dosage: 60 MG, QD
     Dates: start: 20130117, end: 20130201
  4. CYMBALTA [Suspect]
     Dosage: 90 MG, QD
     Dates: start: 20130202

REACTIONS (3)
  - Swollen tongue [Recovered/Resolved]
  - Dysphagia [Recovered/Resolved]
  - Drug ineffective [Not Recovered/Not Resolved]
